FAERS Safety Report 17480677 (Version 1)
Quarter: 2020Q1

REPORT INFORMATION
  Report Type: Other
  Country: US (occurrence: US)
  Receive Date: 20200301
  Receipt Date: 20200301
  Transmission Date: 20200409
  Serious: Yes (Death, Life-Threatening, Hospitalization, Other)
  Sender: FDA-Public Use
  Company Number: US-C B FLEET CO INC-202002-US-000830

PATIENT
  Age: 64 Year
  Sex: Female

DRUGS (1)
  1. ASPIRIN. [Suspect]
     Active Substance: ASPIRIN
     Indication: INTENTIONAL OVERDOSE
     Dosage: DOSE UNKNOWN
     Route: 048

REACTIONS (8)
  - Tachypnoea [Not Recovered/Not Resolved]
  - Acute kidney injury [None]
  - Gastric haemorrhage [None]
  - Bezoar [None]
  - Mental status changes [Not Recovered/Not Resolved]
  - Encephalopathy [None]
  - Intentional overdose [None]
  - Tachycardia [Not Recovered/Not Resolved]
